FAERS Safety Report 15206830 (Version 1)
Quarter: 2018Q4

REPORT INFORMATION
  Report Type: Spontaneous
  Country: DE (occurrence: DE)
  Receive Date: 20180727
  Receipt Date: 20180727
  Transmission Date: 20190204
  Serious: Yes (Other)
  Sender: FDA-Public Use
  Company Number: DE-TEVA-2018-DE-930583

PATIENT
  Age: 5 Decade
  Sex: Female

DRUGS (1)
  1. LORAZEPAM-RATIOPHARM 2,5 MG TABLETTEN [Suspect]
     Active Substance: LORAZEPAM
     Route: 048

REACTIONS (3)
  - Drug ineffective [Unknown]
  - Drug abuse [Unknown]
  - Drug dependence [Unknown]
